FAERS Safety Report 12590162 (Version 1)
Quarter: 2016Q3

REPORT INFORMATION
  Report Type: Spontaneous
  Country: US (occurrence: US)
  Receive Date: 20160725
  Receipt Date: 20160725
  Transmission Date: 20161109
  Serious: Yes (Hospitalization, Other)
  Sender: FDA-Public Use
  Company Number: US-GLAXOSMITHKLINE-US2016105592

PATIENT
  Age: 72 Year
  Sex: Female

DRUGS (11)
  1. LISINOPRIL. [Concomitant]
     Active Substance: LISINOPRIL
  2. ASPIRIN (BABY) [Concomitant]
     Active Substance: ASPIRIN
  3. GLUCOSAMINE [Concomitant]
     Active Substance: GLUCOSAMINE
  4. FUROSEMIDE. [Concomitant]
     Active Substance: FUROSEMIDE
  5. HYDROCODONE [Concomitant]
     Active Substance: HYDROCODONE
  6. POTASSIUM CHLORIDE. [Concomitant]
     Active Substance: POTASSIUM CHLORIDE
  7. VITAMIN B3 [Concomitant]
     Active Substance: NIACIN
  8. NAPROSYN [Concomitant]
     Active Substance: NAPROXEN
  9. VITAMIN B12 [Concomitant]
     Active Substance: CYANOCOBALAMIN
  10. ACETAMINOPHEN. [Concomitant]
     Active Substance: ACETAMINOPHEN
  11. VERAMYST [Suspect]
     Active Substance: FLUTICASONE FUROATE
     Indication: NASAL CYST
     Dosage: 4 PUFF(S), QD
     Route: 045

REACTIONS (13)
  - Sleep apnoea syndrome [Unknown]
  - Neck mass [Not Recovered/Not Resolved]
  - Knee arthroplasty [Unknown]
  - Blood potassium decreased [Unknown]
  - Back pain [Not Recovered/Not Resolved]
  - Off label use [Unknown]
  - Cellulitis [Unknown]
  - Blood magnesium decreased [Unknown]
  - Cardiovascular disorder [Unknown]
  - Vein disorder [Not Recovered/Not Resolved]
  - Product use issue [Unknown]
  - Blood electrolytes decreased [Unknown]
  - Chronic obstructive pulmonary disease [Unknown]

NARRATIVE: CASE EVENT DATE: 201006
